FAERS Safety Report 6237015-7 (Version None)
Quarter: 2009Q2

REPORT INFORMATION
  Report Type: 
  Country: None (occurrence: None)
  Receive Date: 20090619
  Receipt Date: 20090325
  Transmission Date: 20091009
  Serious: No
  Sender: FDA-Public Use
  Company Number: US-ASTRAZENECA-2009UW07599

PATIENT
  Age: 18286 Day
  Sex: Female
  Weight: 81.6 kg

DRUGS (2)
  1. SYMBICORT [Suspect]
     Indication: NASOPHARYNGITIS
     Dosage: 160/4.5 UG
     Route: 055
     Dates: start: 20090324, end: 20090324
  2. SYMBICORT [Suspect]
     Indication: MULTIPLE ALLERGIES
     Dosage: 160/4.5 UG
     Route: 055
     Dates: start: 20090324, end: 20090324

REACTIONS (1)
  - CHEST PAIN [None]
